FAERS Safety Report 5808106-7 (Version None)
Quarter: 2008Q3

REPORT INFORMATION
  Report Type: 
  Country: None (occurrence: None)
  Receive Date: 20080708
  Receipt Date: 20080624
  Transmission Date: 20090109
  Serious: Yes (Hospitalization)
  Sender: FDA-Public Use
  Company Number: 08P-028-0459771-00

PATIENT
  Age: 3 Month

DRUGS (3)
  1. SYNAGIS [Suspect]
     Indication: ANTIVIRAL PROPHYLAXIS
     Dosage: 54 MG, INTRAMUSCULAR, 48 MG, INTRAMUSCUAR, 43 MG, INTRAMUSCULAR
     Route: 030
     Dates: start: 20080209, end: 20080209
  2. SYNAGIS [Suspect]
     Indication: ANTIVIRAL PROPHYLAXIS
     Dosage: 54 MG, INTRAMUSCULAR, 48 MG, INTRAMUSCUAR, 43 MG, INTRAMUSCULAR
     Route: 030
     Dates: start: 20080311, end: 20080311
  3. SYNAGIS [Suspect]
     Indication: ANTIVIRAL PROPHYLAXIS
     Dosage: 54 MG, INTRAMUSCULAR, 48 MG, INTRAMUSCUAR, 43 MG, INTRAMUSCULAR
     Route: 030
     Dates: start: 20080408, end: 20080408

REACTIONS (7)
  - APNOEA [None]
  - DYSPNOEA [None]
  - GAIT DISTURBANCE [None]
  - GREY SYNDROME NEONATAL [None]
  - HEART RATE DECREASED [None]
  - HYPOTONIA [None]
  - UPPER RESPIRATORY TRACT INFECTION [None]
